FAERS Safety Report 17888945 (Version 1)
Quarter: 2020Q2

REPORT INFORMATION
  Report Type: Spontaneous
  Country: US (occurrence: US)
  Receive Date: 20200612
  Receipt Date: 20200612
  Transmission Date: 20200714
  Serious: No
  Sender: FDA-Public Use
  Company Number: US-SA-2020SA146295

PATIENT

DRUGS (8)
  1. ASPIRIN [ACETYLSALICYLIC ACID] [Concomitant]
     Active Substance: ASPIRIN
  2. VITAMIN B12 [Concomitant]
     Active Substance: CYANOCOBALAMIN
  3. FISH OIL [Concomitant]
     Active Substance: FISH OIL
  4. VITAMINS NOS [Concomitant]
     Active Substance: VITAMINS
  5. LIPITOR [Concomitant]
     Active Substance: ATORVASTATIN CALCIUM
  6. AUBAGIO [Suspect]
     Active Substance: TERIFLUNOMIDE
     Indication: MULTIPLE SCLEROSIS
     Dosage: 14 MG, QD
     Route: 048
     Dates: start: 20181218
  7. BACLOFEN. [Concomitant]
     Active Substance: BACLOFEN
  8. INDERAL [Concomitant]
     Active Substance: PROPRANOLOL HYDROCHLORIDE

REACTIONS (1)
  - Drug ineffective [Unknown]
